FAERS Safety Report 14613160 (Version 1)
Quarter: 2018Q1

REPORT INFORMATION
  Report Type: Spontaneous
  Country: DE (occurrence: DE)
  Receive Date: 20180308
  Receipt Date: 20180308
  Transmission Date: 20180509
  Serious: Yes (Hospitalization, Other)
  Sender: FDA-Public Use
  Company Number: DE-009507513-1802DEU013785

PATIENT
  Age: 34 Year
  Sex: Female
  Weight: 62.2 kg

DRUGS (2)
  1. ORGALUTRAN [Suspect]
     Active Substance: GANIRELIX ACETATE
     Indication: MANAGEMENT OF REPRODUCTION
     Dosage: UNK
     Dates: start: 20180125
  2. OVALEAP [Suspect]
     Active Substance: FOLLITROPIN
     Indication: MANAGEMENT OF REPRODUCTION
     Dosage: UNK
     Dates: start: 20180120

REACTIONS (2)
  - Ovarian hyperstimulation syndrome [Recovered/Resolved]
  - Haemorrhage [Recovered/Resolved]

NARRATIVE: CASE EVENT DATE: 20180131
